FAERS Safety Report 22832408 (Version 2)
Quarter: 2023Q4

REPORT INFORMATION
  Report Type: Spontaneous
  Country: FR (occurrence: None)
  Receive Date: 20230817
  Receipt Date: 20231026
  Transmission Date: 20240109
  Serious: Yes (Hospitalization)
  Sender: FDA-Public Use
  Company Number: 2023A181507

PATIENT
  Age: 64 Year
  Sex: Female
  Weight: 57 kg

DRUGS (1)
  1. TAGRISSO [Suspect]
     Active Substance: OSIMERTINIB
     Indication: Lung adenocarcinoma
     Route: 048
     Dates: start: 20210301

REACTIONS (1)
  - Eosinophilic pneumonia [Recovered/Resolved]

NARRATIVE: CASE EVENT DATE: 20230701
